FAERS Safety Report 5737081-9 (Version None)
Quarter: 2008Q2

REPORT INFORMATION
  Report Type: 
  Country: None (occurrence: None)
  Receive Date: 20080514
  Receipt Date: 20080505
  Transmission Date: 20081010
  Serious: Yes (Hospitalization)
  Sender: FDA-Public Use
  Company Number: US-JNJFOC-20080201463

PATIENT
  Sex: Male
  Weight: 28.8 kg

DRUGS (2)
  1. REMICADE [Suspect]
     Route: 041
  2. REMICADE [Suspect]
     Indication: CROHN'S DISEASE
     Route: 041

REACTIONS (6)
  - HERPES SIMPLEX [None]
  - INFECTIOUS MONONUCLEOSIS [None]
  - INFUSION RELATED REACTION [None]
  - OESOPHAGITIS [None]
  - PHARYNGITIS [None]
  - PYREXIA [None]
